FAERS Safety Report 11472972 (Version 1)
Quarter: 2015Q3

REPORT INFORMATION
  Report Type: Spontaneous
  Country: US (occurrence: US)
  Receive Date: 20150908
  Receipt Date: 20150908
  Transmission Date: 20151125
  Serious: Yes (Other)
  Sender: FDA-Public Use
  Company Number: US-JAZZ-2014-US-002282

PATIENT
  Sex: Female
  Weight: 81.63 kg

DRUGS (20)
  1. PROZAC [Concomitant]
     Active Substance: FLUOXETINE HYDROCHLORIDE
     Indication: PRODUCT USED FOR UNKNOWN INDICATION
     Dosage: 20 MG, QD
  2. XYREM [Suspect]
     Active Substance: SODIUM OXYBATE
     Indication: NARCOLEPSY
     Dosage: 2.25 G, BID
     Route: 048
     Dates: start: 200703, end: 2007
  3. GABAPENTIN. [Concomitant]
     Active Substance: GABAPENTIN
     Indication: NEUROPATHY PERIPHERAL
  4. XYREM [Suspect]
     Active Substance: SODIUM OXYBATE
     Indication: CATAPLEXY
     Dosage: DOSE ADJUSTMENTS
     Route: 048
  5. CLONIDINE. [Concomitant]
     Active Substance: CLONIDINE
     Indication: HYPERTENSION
     Dosage: 0.2 MG, QW
     Route: 062
     Dates: start: 201311
  6. MULTIVITAMINS [Concomitant]
     Active Substance: VITAMINS
     Indication: PRODUCT USED FOR UNKNOWN INDICATION
  7. IBUPROFEN. [Concomitant]
     Active Substance: IBUPROFEN
     Indication: PRODUCT USED FOR UNKNOWN INDICATION
     Dosage: 800 MG, TID
  8. LISINOPRIL. [Suspect]
     Active Substance: LISINOPRIL
     Indication: HYPERTENSION
     Dosage: 20 MG, QD
     Dates: end: 201404
  9. CATAPRES [Concomitant]
     Active Substance: CLONIDINE HYDROCHLORIDE
     Indication: BLOOD PRESSURE ABNORMAL
  10. FLUOXETINE [Concomitant]
     Active Substance: FLUOXETINE\FLUOXETINE HYDROCHLORIDE
     Indication: DEPRESSION
     Dosage: 20 MG, QD
  11. CYMBALTA [Concomitant]
     Active Substance: DULOXETINE HYDROCHLORIDE
     Indication: DEPRESSION
     Dosage: 60 MG, QD
     Dates: start: 201308
  12. CYMBALTA [Concomitant]
     Active Substance: DULOXETINE HYDROCHLORIDE
     Dosage: 20 MG, BID
  13. GABAPENTIN. [Concomitant]
     Active Substance: GABAPENTIN
     Indication: TREMOR
     Dosage: 100 MG, QD
     Dates: start: 201406
  14. GABAPENTIN. [Concomitant]
     Active Substance: GABAPENTIN
     Indication: RESTLESS LEGS SYNDROME
  15. WELLBUTRIN [Concomitant]
     Active Substance: BUPROPION HYDROCHLORIDE
     Indication: DEPRESSION
     Dosage: 300 MG, QD
  16. XYREM [Suspect]
     Active Substance: SODIUM OXYBATE
     Dosage: 4.5 G, BID
     Route: 048
     Dates: start: 201304
  17. HYDROXYZINE HCL [Suspect]
     Active Substance: HYDROXYZINE HYDROCHLORIDE
     Indication: PRURITUS
     Dosage: 25 MG, QD
     Route: 048
     Dates: start: 20140903
  18. HYDROCHLOROTHIAZIDE. [Suspect]
     Active Substance: HYDROCHLOROTHIAZIDE
     Indication: HYPERTENSION
     Dosage: 12.5 MG, QD
     Route: 048
     Dates: start: 20140903
  19. SELENIUM [Concomitant]
     Active Substance: SELENIUM
     Indication: SEBORRHOEA
     Dosage: UNK, QD
     Route: 061
  20. NUVIGIL [Concomitant]
     Active Substance: ARMODAFINIL
     Indication: NARCOLEPSY
     Dosage: 250 MG, QD
     Dates: start: 2011

REACTIONS (12)
  - Pruritus [Unknown]
  - Hypersensitivity [Recovering/Resolving]
  - Anxiety [Not Recovered/Not Resolved]
  - Stress [Unknown]
  - Smear cervix abnormal [Not Recovered/Not Resolved]
  - Fatigue [Not Recovered/Not Resolved]
  - Tremor [Not Recovered/Not Resolved]
  - Dizziness [Not Recovered/Not Resolved]
  - Hypertension [Not Recovered/Not Resolved]
  - Nausea [Not Recovered/Not Resolved]
  - Wrong technique in product usage process [Unknown]
  - Amnesia [Unknown]

NARRATIVE: CASE EVENT DATE: 2014
